FAERS Safety Report 7028644-1 (Version None)
Quarter: 2010Q4

REPORT INFORMATION
  Report Type: 
  Country: None (occurrence: None)
  Receive Date: 20101005
  Receipt Date: 20100928
  Transmission Date: 20110411
  Serious: Yes (Other)
  Sender: FDA-Public Use
  Company Number: FR-AMGEN-QUU421395

PATIENT
  Sex: Female
  Weight: 44 kg

DRUGS (4)
  1. NPLATE [Suspect]
     Indication: IDIOPATHIC THROMBOCYTOPENIC PURPURA
  2. SOLUPRED [Concomitant]
  3. CALCIDOSE [Concomitant]
  4. VITAMIN D3 [Concomitant]

REACTIONS (2)
  - MOUTH HAEMORRHAGE [None]
  - THROMBOCYTOSIS [None]
